FAERS Safety Report 24605151 (Version 1)
Quarter: 2024Q4

REPORT INFORMATION
  Report Type: Spontaneous
  Country: US (occurrence: US)
  Receive Date: 20241111
  Receipt Date: 20241111
  Transmission Date: 20250115
  Serious: No
  Sender: PARATEK PHARMACEUTICALS
  Company Number: US-PARATEK PHARMACEUTICALS, INC.-2024PTK00133

PATIENT
  Age: 55 Year
  Sex: Female

DRUGS (24)
  1. NUZYRA [Suspect]
     Active Substance: OMADACYCLINE
     Indication: Atypical mycobacterial infection
     Dosage: 450 MG, 1X/DAY
     Route: 048
     Dates: start: 202312, end: 202312
  2. NUZYRA [Suspect]
     Active Substance: OMADACYCLINE
     Indication: Mycobacterium chelonae infection
     Dosage: 300 MG, 1X/DAY
     Route: 048
     Dates: start: 202312
  3. TYLENOL [Concomitant]
     Active Substance: ACETAMINOPHEN
  4. ASPIRIN [Concomitant]
     Active Substance: ASPIRIN
  5. AZITHROMYCIN [Concomitant]
     Active Substance: AZITHROMYCIN
  6. CALCITRIOL [Concomitant]
     Active Substance: CALCITRIOL
  7. TUMS [Concomitant]
     Active Substance: CALCIUM CARBONATE
  8. CARVEDILOL [Concomitant]
     Active Substance: CARVEDILOL
  9. VITAMIN D NOS [Concomitant]
     Active Substance: CHOLECALCIFEROL\ERGOCALCIFEROL
  10. LANTUS [Concomitant]
     Active Substance: INSULIN GLARGINE
  11. HUMALOG [Concomitant]
     Active Substance: INSULIN LISPRO
  12. SYNTHROID [Concomitant]
     Active Substance: LEVOTHYROXINE SODIUM
  13. LINAGLIPTIN [Concomitant]
     Active Substance: LINAGLIPTIN
  14. LINEZOLID [Concomitant]
     Active Substance: LINEZOLID
  15. MIDODRINE [Concomitant]
     Active Substance: MIDODRINE
  16. MYCOPHENOLIC ACID [Concomitant]
     Active Substance: MYCOPHENOLIC ACID
  17. OMEPRAZOLE [Concomitant]
     Active Substance: OMEPRAZOLE
  18. ZOFRAN [Concomitant]
     Active Substance: ONDANSETRON HYDROCHLORIDE
  19. PREDNISONE [Concomitant]
     Active Substance: PREDNISONE
  20. CRESTOR [Concomitant]
     Active Substance: ROSUVASTATIN CALCIUM
  21. BACTRIM [Concomitant]
     Active Substance: SULFAMETHOXAZOLE\TRIMETHOPRIM
  22. PROGRAF [Concomitant]
     Active Substance: TACROLIMUS
  23. VENLAFAXINE [Concomitant]
     Active Substance: VENLAFAXINE HYDROCHLORIDE
  24. VORTIOXETINE [Concomitant]
     Active Substance: VORTIOXETINE

REACTIONS (3)
  - Skin discolouration [Not Recovered/Not Resolved]
  - Skin hyperpigmentation [Not Recovered/Not Resolved]
  - Off label use [Unknown]

NARRATIVE: CASE EVENT DATE: 20231201
